FAERS Safety Report 11419820 (Version 3)
Quarter: 2015Q3

REPORT INFORMATION
  Report Type: Spontaneous
  Country: CA (occurrence: CA)
  Receive Date: 20150826
  Receipt Date: 20150911
  Transmission Date: 20151125
  Serious: Yes (Other)
  Sender: FDA-Public Use
  Company Number: CA-PFIZER INC-2015259625

PATIENT
  Age: 19 Year
  Sex: Male
  Weight: 54 kg

DRUGS (2)
  1. XYNTHA [Suspect]
     Active Substance: ANTIHEMOPHILIC FACTOR, HUMAN RECOMBINANT RESIDUES 743-1636 DELETED
     Indication: HAEMORRHAGE
     Dosage: 1500 IU, 1X/DAY
     Route: 042
     Dates: start: 20150619
  2. XYNTHA [Suspect]
     Active Substance: ANTIHEMOPHILIC FACTOR, HUMAN RECOMBINANT RESIDUES 743-1636 DELETED
     Indication: PROPHYLAXIS
     Dosage: 500 IU, 1X/DAY
     Route: 042
     Dates: start: 20150619

REACTIONS (4)
  - Factor VIII inhibition [Recovered/Resolved]
  - Haematoma [Recovered/Resolved]
  - Haemarthrosis [Recovered/Resolved]
  - Ecchymosis [Recovered/Resolved]

NARRATIVE: CASE EVENT DATE: 20150729
